FAERS Safety Report 22932340 (Version 3)
Quarter: 2023Q4

REPORT INFORMATION
  Report Type: Spontaneous
  Country: BE (occurrence: BE)
  Receive Date: 20230912
  Receipt Date: 20231010
  Transmission Date: 20240110
  Serious: Yes (Life-Threatening)
  Sender: FDA-Public Use
  Company Number: BE-JNJFOC-20230907654

PATIENT
  Age: 71 Year
  Sex: Female
  Weight: 51.6 kg

DRUGS (13)
  1. ERDAFITINIB [Suspect]
     Active Substance: ERDAFITINIB
     Indication: Product used for unknown indication
     Dosage: 8 MG, 3 MG, 4 MG
     Route: 065
     Dates: start: 20230804, end: 20230901
  2. ERDAFITINIB [Suspect]
     Active Substance: ERDAFITINIB
     Route: 065
     Dates: start: 20230908
  3. ASPIRIN [Concomitant]
     Active Substance: ASPIRIN
     Dosage: 80 MG, 8U
  4. DAFALGAN [Concomitant]
     Active Substance: ACETAMINOPHEN
  5. BECLOMETHASONE DIPROPIONATE\FORMOTEROL FUMARATE [Concomitant]
     Active Substance: BECLOMETHASONE DIPROPIONATE\FORMOTEROL FUMARATE
     Dosage: NEXTHALER (FL INHAL. 100/6 MCG/DOS 120DOS), 2 INHAL, INHAL, 2/D, 8U 20U
  6. ISOPTO TEARS [HYPROMELLOSE] [Concomitant]
     Dosage: TEARS (COLLYRE 15 ML), 1 DROP, LOC EYE BILATERALLY, 2/D, 8 A.M. 8 P.M
  7. MOTILIUM [Concomitant]
     Active Substance: DOMPERIDONE
     Dosage: 10 MG, 3/D, 8U 12U 18U
  8. MOVICOLON [Concomitant]
     Active Substance: POLYETHYLENE GLYCOL 3350\POTASSIUM CHLORIDE\SODIUM BICARBONATE\SODIUM CHLORIDE
     Dosage: IMPEXECO (NEUTRAL BAG 13.7 G), 1 BAG
  9. MYROSOR [Concomitant]
     Dosage: 20-10 MG, 1 TABL, 1/D, 18U
  10. NASONEX [Concomitant]
     Active Substance: MOMETASONE FUROATE
     Dosage: 50 MCG/DOS 140 D), 1 SPRAY, LOC NEUS, 1/D, 20U
     Route: 045
  11. PANTOMED D [Concomitant]
     Dosage: 40 MG, 1/D, 7U
  12. ZESTRIL [Concomitant]
     Active Substance: LISINOPRIL
     Dosage: 20 MG, 1D, 8 U
  13. ZOLPIDEM [Concomitant]
     Active Substance: ZOLPIDEM TARTRATE
     Dosage: ZOLPIDEM EG, 10 MG, 1/D, 21H

REACTIONS (2)
  - Hepatitis [Recovering/Resolving]
  - Hyperphosphataemia [Recovering/Resolving]

NARRATIVE: CASE EVENT DATE: 20230901
